FAERS Safety Report 9413169 (Version 3)
Quarter: 2013Q3

REPORT INFORMATION
  Report Type: Spontaneous
  Country: DE (occurrence: DE)
  Receive Date: 20130722
  Receipt Date: 20130925
  Transmission Date: 20140515
  Serious: Yes (Hospitalization, Other)
  Sender: FDA-Public Use
  Company Number: DE-UCBSA-092686

PATIENT
  Age: 13 Year
  Sex: Male
  Weight: 75 kg

DRUGS (2)
  1. EQUASYM RETARD [Suspect]
     Indication: ATTENTION DEFICIT/HYPERACTIVITY DISORDER
     Route: 048
     Dates: end: 20121119
  2. EQUASYM RETARD [Suspect]
     Indication: ATTENTION DEFICIT/HYPERACTIVITY DISORDER
     Dosage: (60-60-30MG), 2MG/KG
     Route: 048
     Dates: start: 20121120, end: 20130709

REACTIONS (3)
  - Haematuria [Recovered/Resolved]
  - Heart rate increased [Unknown]
  - Drug prescribing error [Unknown]
